FAERS Safety Report 4264619-3 (Version None)
Quarter: 2004Q1

REPORT INFORMATION
  Report Type: 
  Country: None (occurrence: None)
  Receive Date: 20040102
  Receipt Date: 20031219
  Transmission Date: 20041129
  Serious: Yes (Disabling)
  Sender: FDA-Public Use
  Company Number: HQWYE844122DEC03

PATIENT
  Sex: Female
  Weight: 45.4 kg

DRUGS (3)
  1. PHENERGAN [Suspect]
     Indication: MUSCLE SPASMS
     Dosage: SIX OR SEVEN 25 MG TABLETS DAILY, ORAL
     Route: 048
     Dates: start: 20001201, end: 20020101
  2. PHENERGAN [Suspect]
     Indication: NAUSEA
     Dosage: SIX OR SEVEN 25 MG TABLETS DAILY, ORAL
     Route: 048
     Dates: start: 20001201, end: 20020101
  3. ZYPREXA [Concomitant]

REACTIONS (6)
  - CONDITION AGGRAVATED [None]
  - DYSTONIA [None]
  - HEADACHE [None]
  - PAIN [None]
  - PARAESTHESIA [None]
  - TARDIVE DYSKINESIA [None]
